FAERS Safety Report 5521463-4 (Version None)
Quarter: 2007Q4

REPORT INFORMATION
  Report Type: 
  Country: None (occurrence: None)
  Receive Date: 20071119
  Receipt Date: 20071107
  Transmission Date: 20080405
  Serious: Yes (Other)
  Sender: FDA-Public Use
  Company Number: US-PFIZER INC-2007079265

PATIENT
  Sex: Female
  Weight: 86.2 kg

DRUGS (6)
  1. LYRICA [Suspect]
     Indication: HYPOAESTHESIA
     Route: 048
     Dates: start: 20070918, end: 20070101
  2. CELEBREX [Concomitant]
  3. ALL OTHER THERAPEUTIC PRODUCTS [Concomitant]
  4. BUPROPION HYDROCHLORIDE [Concomitant]
  5. VITAMIN A [Concomitant]
  6. FISH OIL [Concomitant]

REACTIONS (2)
  - DIZZINESS [None]
  - IMPAIRED WORK ABILITY [None]
